FAERS Safety Report 15165046 (Version 1)
Quarter: 2018Q3

REPORT INFORMATION
  Report Type: Report from Study
  Country: DE (occurrence: DE)
  Receive Date: 20180719
  Receipt Date: 20180719
  Transmission Date: 20181010
  Serious: Yes (Death, Hospitalization)
  Sender: FDA-Public Use
  Company Number: DE-ROCHE-2079543

PATIENT
  Age: 65 Year
  Sex: Female
  Weight: 71 kg

DRUGS (2)
  1. PACLITAXEL. [Concomitant]
     Active Substance: PACLITAXEL
     Indication: BREAST CANCER
     Dosage: SHE RECIEVED SUBSEQUENT DOSES OF PACLITAXEL ON 21/MAY/2012, 29/MAY/2012, 04/JUN/2012, 11/JUN/2012 AN
     Route: 065
     Dates: start: 20120514, end: 20120618
  2. BEVACIZUMAB. [Suspect]
     Active Substance: BEVACIZUMAB
     Indication: BREAST CANCER
     Route: 065
     Dates: start: 20120529, end: 20120618

REACTIONS (2)
  - Death [Fatal]
  - Colonic abscess [Unknown]

NARRATIVE: CASE EVENT DATE: 20120803
